FAERS Safety Report 5848065-4 (Version None)
Quarter: 2008Q3

REPORT INFORMATION
  Report Type: 
  Country: None (occurrence: None)
  Receive Date: 20080815
  Receipt Date: 20080815
  Transmission Date: 20090109
  Serious: Yes (Other)
  Sender: FDA-Public Use
  Company Number: None

PATIENT
  Sex: Female
  Weight: 56.6996 kg

DRUGS (1)
  1. RESTASIS [Suspect]
     Indication: DRY EYE
     Dosage: 1 VIAL A DAY
     Dates: start: 20080521

REACTIONS (3)
  - BLINDNESS [None]
  - EYE IRRITATION [None]
  - VISION BLURRED [None]
